FAERS Safety Report 7742974-7 (Version None)
Quarter: 2011Q3

REPORT INFORMATION
  Report Type: 
  Country: None (occurrence: None)
  Receive Date: 20110819
  Receipt Date: 20110427
  Transmission Date: 20111222
  Serious: No
  Sender: FDA-Public Use
  Company Number: 033025

PATIENT

DRUGS (1)
  1. LACOSAMIDE [Suspect]
     Dosage: NOT CONTINUING

REACTIONS (1)
  - ABNORMAL BEHAVIOUR [None]
